FAERS Safety Report 6657378-8 (Version None)
Quarter: 2010Q1

REPORT INFORMATION
  Report Type: 
  Country: None (occurrence: None)
  Receive Date: 20100330
  Receipt Date: 20100323
  Transmission Date: 20100710
  Serious: Yes (Other)
  Sender: FDA-Public Use
  Company Number: CZ-SANOFI-AVENTIS-2010SA017464

PATIENT
  Age: 53 Year
  Sex: Female
  Weight: 60 kg

DRUGS (8)
  1. ARAVA [Suspect]
     Indication: RHEUMATOID ARTHRITIS
     Route: 048
     Dates: start: 20091106, end: 20100304
  2. HELICID [Concomitant]
     Route: 048
  3. ESSENTIALE FORTE [Concomitant]
     Route: 048
  4. SILYMARIN [Concomitant]
     Route: 048
  5. MELOXICAM [Concomitant]
     Route: 048
  6. PREDNISONE TAB [Concomitant]
     Indication: RHEUMATOID ARTHRITIS
     Route: 048
  7. POTASSIUM CHLORIDE [Concomitant]
     Route: 048
  8. LESCOL XL [Suspect]
     Route: 048
     Dates: start: 20100201, end: 20100304

REACTIONS (1)
  - LIVER FUNCTION TEST ABNORMAL [None]
